FAERS Safety Report 10904474 (Version 1)
Quarter: 2015Q1

REPORT INFORMATION
  Report Type: Spontaneous
  Country: US (occurrence: None)
  Receive Date: 20150113
  Receipt Date: 20150113
  Transmission Date: 20150721
  Serious: No
  Sender: FDA-Public Use
  Company Number: PHEH2014US022281

PATIENT
  Age: 21 Year
  Sex: Female

DRUGS (1)
  1. SIGNIFOR [Suspect]
     Active Substance: PASIREOTIDE
     Indication: PITUITARY-DEPENDENT CUSHING^S SYNDROME
     Route: 058
     Dates: start: 20140914, end: 20140924

REACTIONS (4)
  - Rash [None]
  - Liver function test abnormal [None]
  - Injection site pruritus [None]
  - Headache [None]

NARRATIVE: CASE EVENT DATE: 20140914
